FAERS Safety Report 4776500-1 (Version None)
Quarter: 2005Q3

REPORT INFORMATION
  Report Type: 
  Country: None (occurrence: None)
  Receive Date: 20050915
  Receipt Date: 20050901
  Transmission Date: 20060218
  Serious: Yes (Other)
  Sender: FDA-Public Use
  Company Number: CAP05000261

PATIENT
  Age: 43 Year
  Sex: Male
  Weight: 104 kg

DRUGS (6)
  1. DANTRIUM [Suspect]
     Indication: NEUROLEPTIC MALIGNANT SYNDROME
     Dosage: SEE IMAGE
     Route: 042
     Dates: start: 20050809, end: 20050810
  2. DANTRIUM [Suspect]
     Indication: NEUROLEPTIC MALIGNANT SYNDROME
     Dosage: SEE IMAGE
     Route: 042
     Dates: start: 20050808
  3. METFORMIN HCL [Concomitant]
  4. RISPERIDONE [Concomitant]
  5. OLANZAPINE [Concomitant]
  6. PROPOFOL [Concomitant]

REACTIONS (8)
  - AREFLEXIA [None]
  - DEPRESSED LEVEL OF CONSCIOUSNESS [None]
  - DRUG CLEARANCE DECREASED [None]
  - ELECTROLYTE IMBALANCE [None]
  - HYPOTONIA [None]
  - LIVER DISORDER [None]
  - METABOLIC ACIDOSIS [None]
  - RENAL IMPAIRMENT [None]
